FAERS Safety Report 5651874-8 (Version None)
Quarter: 2008Q1

REPORT INFORMATION
  Report Type: 
  Country: None (occurrence: None)
  Receive Date: 20080305
  Receipt Date: 20080227
  Transmission Date: 20080703
  Serious: Yes (Hospitalization, Other)
  Sender: FDA-Public Use
  Company Number: US-PFIZER INC-2008018354

PATIENT
  Sex: Female

DRUGS (2)
  1. GEODON [Suspect]
  2. ALCOHOL [Suspect]

REACTIONS (7)
  - CONVULSION [None]
  - FALL [None]
  - INTENTIONAL OVERDOSE [None]
  - JOINT DISLOCATION [None]
  - NEUROLEPTIC MALIGNANT SYNDROME [None]
  - RENAL DISORDER [None]
  - RHABDOMYOLYSIS [None]
